FAERS Safety Report 5870509-2 (Version None)
Quarter: 2008Q3

REPORT INFORMATION
  Report Type: 
  Country: None (occurrence: None)
  Receive Date: 20080904
  Receipt Date: 20080827
  Transmission Date: 20090109
  Serious: Yes (Hospitalization)
  Sender: FDA-Public Use
  Company Number: FR-BRISTOL-MYERS SQUIBB COMPANY-14320634

PATIENT
  Age: 66 Year
  Sex: Female

DRUGS (3)
  1. CETUXIMAB [Suspect]
     Indication: BILE DUCT CANCER
     Dosage: RECENT INFUSION TAKEN ON 13AUG08.
     Route: 042
     Dates: start: 20080801
  2. OXALIPLATIN [Suspect]
     Indication: BILE DUCT CANCER
     Dosage: RECENT INFUSION TAKEN ON 14AUG08.
     Route: 042
     Dates: start: 20080801
  3. GEMCITABINE [Suspect]
     Indication: BILE DUCT CANCER
     Dosage: RECENT INFUSION TAKEN ON 13AUG08.
     Route: 042
     Dates: start: 20080801

REACTIONS (2)
  - HYPERSENSITIVITY [None]
  - ORAL DYSAESTHESIA [None]
